FAERS Safety Report 12740614 (Version 1)
Quarter: 2016Q3

REPORT INFORMATION
  Report Type: Other
  Country: FR (occurrence: FR)
  Receive Date: 20160914
  Receipt Date: 20160914
  Transmission Date: 20161109
  Serious: No
  Sender: FDA-Public Use
  Company Number: FR-LUPIN PHARMACEUTICALS INC.-2016-03310

PATIENT
  Age: 78 Year
  Sex: Female

DRUGS (3)
  1. RUXOLITINIB [Interacting]
     Active Substance: RUXOLITINIB
     Dosage: 10 MG/KG
     Route: 065
  2. RUXOLITINIB [Interacting]
     Active Substance: RUXOLITINIB
     Indication: MYELOFIBROSIS
     Route: 065
     Dates: start: 201311
  3. RIFAMPICIN [Suspect]
     Active Substance: RIFAMPIN
     Indication: TUBERCULOSIS
     Dosage: 10 MG /KG
     Route: 065

REACTIONS (2)
  - Drug interaction [Unknown]
  - Drug level decreased [Unknown]
